FAERS Safety Report 7714800-3 (Version None)
Quarter: 2011Q3

REPORT INFORMATION
  Report Type: 
  Country: None (occurrence: None)
  Receive Date: 20110810
  Receipt Date: 20110527
  Transmission Date: 20111222
  Serious: No
  Sender: FDA-Public Use
  Company Number: 1000021221

PATIENT
  Age: 57 Year
  Sex: Female

DRUGS (9)
  1. HYDROCHLOROTHIAZIDE [Concomitant]
  2. CELEBREX [Concomitant]
  3. VICODIN (VICODIN) (VICODIN) [Concomitant]
  4. SAVELLA [Suspect]
     Indication: FIBROMYALGIA
     Dosage: 12.5 MG (12.5 MG,1 IN 1 D),ORAL ; 25 MG (12.5 MG,2 IN 1 D),ORAL
     Route: 048
     Dates: start: 20110523, end: 20110523
  5. SAVELLA [Suspect]
     Indication: FIBROMYALGIA
     Dosage: 12.5 MG (12.5 MG,1 IN 1 D),ORAL ; 25 MG (12.5 MG,2 IN 1 D),ORAL
     Route: 048
     Dates: start: 20110524, end: 20110525
  6. ADVAIR (SERETIDE) (SERETIDE) [Concomitant]
  7. VENTOLIN (ALBUTEROL) (ALBUTEROL) [Concomitant]
  8. SAVELLA [Suspect]
     Indication: FIBROMYALGIA
     Dosage: 50 MG (25 MG,2 IN 1 D),ORAL
     Route: 048
     Dates: start: 20110526, end: 20110527
  9. KLONOPIN (CLONAZEPAM) (CLONAZEPAM) [Concomitant]

REACTIONS (2)
  - ANXIETY [None]
  - AGITATION [None]
